FAERS Safety Report 20171946 (Version 2)
Quarter: 2022Q1

REPORT INFORMATION
  Report Type: Report from Study
  Country: JP (occurrence: JP)
  Receive Date: 20211210
  Receipt Date: 20220111
  Transmission Date: 20220424
  Serious: Yes (Death)
  Sender: FDA-Public Use
  Company Number: JP-Merck Healthcare KGaA-9286395

PATIENT
  Age: 86 Year
  Sex: Male
  Weight: 63 kg

DRUGS (15)
  1. BAVENCIO [Suspect]
     Active Substance: AVELUMAB
     Indication: Metastatic renal cell carcinoma
     Dosage: 281.5 ML/HOUR
     Route: 042
     Dates: start: 20200225, end: 20200908
  2. AXITINIB [Suspect]
     Active Substance: AXITINIB
     Indication: Metastatic renal cell carcinoma
     Dates: start: 20200225, end: 20200323
  3. AXITINIB [Suspect]
     Active Substance: AXITINIB
     Dates: start: 20200324, end: 20200328
  4. AXITINIB [Suspect]
     Active Substance: AXITINIB
     Dates: start: 20200408, end: 20200421
  5. AXITINIB [Suspect]
     Active Substance: AXITINIB
     Dates: start: 20200422, end: 20200718
  6. AXITINIB [Suspect]
     Active Substance: AXITINIB
     Dates: start: 20200729, end: 20200929
  7. AXITINIB [Suspect]
     Active Substance: AXITINIB
     Dates: start: 20210113, end: 20210531
  8. ACETAMINOPHEN [Concomitant]
     Active Substance: ACETAMINOPHEN
     Indication: Premedication
     Route: 048
     Dates: start: 20200225, end: 20200908
  9. RESTAMIN [DIPHENHYDRAMINE HYDROCHLORIDE] [Concomitant]
     Indication: Premedication
     Route: 048
     Dates: start: 20200225, end: 20200908
  10. PREDONINE [Concomitant]
     Active Substance: PREDNISOLONE
     Indication: Product used for unknown indication
  11. BEZAFIBRATE [Concomitant]
     Active Substance: BEZAFIBRATE
     Indication: Product used for unknown indication
  12. AZILSARTAN KAMEDOXOMIL [Concomitant]
     Active Substance: AZILSARTAN KAMEDOXOMIL
     Indication: Product used for unknown indication
  13. PREDONINE [Concomitant]
     Active Substance: PREDNISOLONE
     Indication: Product used for unknown indication
  14. AMLODIPINE BESYLATE\AZILSARTAN [Concomitant]
     Active Substance: AMLODIPINE BESYLATE\AZILSARTAN
     Indication: Product used for unknown indication
  15. ASPIRIN [Concomitant]
     Active Substance: ASPIRIN
     Indication: Product used for unknown indication

REACTIONS (1)
  - Death [Fatal]

NARRATIVE: CASE EVENT DATE: 20210531
